FAERS Safety Report 20166181 (Version 1)
Quarter: 2021Q4

REPORT INFORMATION
  Report Type: Report from Study
  Country: DE (occurrence: DE)
  Receive Date: 20211209
  Receipt Date: 20211209
  Transmission Date: 20220303
  Serious: Yes (Hospitalization)
  Sender: FDA-Public Use
  Company Number: DE-JNJFOC-20210634698

PATIENT
  Age: 5 Decade
  Sex: Female

DRUGS (6)
  1. SIMPONI [Suspect]
     Active Substance: GOLIMUMAB
     Indication: Axial spondyloarthritis
     Route: 058
     Dates: start: 20191212, end: 20191212
  2. SIMPONI [Suspect]
     Active Substance: GOLIMUMAB
     Route: 058
     Dates: start: 20200625, end: 20200917
  3. SIMPONI [Suspect]
     Active Substance: GOLIMUMAB
     Route: 058
     Dates: start: 20201019, end: 20210103
  4. ETORICOXIB [Concomitant]
     Active Substance: ETORICOXIB
     Dates: start: 20180801
  5. ETORICOXIB [Concomitant]
     Active Substance: ETORICOXIB
     Dates: start: 20180801
  6. ETORICOXIB [Concomitant]
     Active Substance: ETORICOXIB
     Dates: start: 20180801

REACTIONS (8)
  - Haemorrhoids [Unknown]
  - Eye infection [Unknown]
  - Oral herpes [Unknown]
  - Pharyngitis [Unknown]
  - Rib fracture [Unknown]
  - Lumbar radiculopathy [Unknown]
  - Pulpitis dental [Unknown]
  - Dry skin [Unknown]

NARRATIVE: CASE EVENT DATE: 20200915
